FAERS Safety Report 21133787 (Version 2)
Quarter: 2022Q3

REPORT INFORMATION
  Report Type: Spontaneous
  Country: US (occurrence: US)
  Receive Date: 20220726
  Receipt Date: 20220809
  Transmission Date: 20221026
  Serious: No
  Sender: FDA-Public Use
  Company Number: US-GILEAD-2022-0590616

PATIENT
  Sex: Female

DRUGS (6)
  1. EPCLUSA [Suspect]
     Active Substance: SOFOSBUVIR\VELPATASVIR
     Indication: Chronic hepatitis C
     Dosage: 1 DOSAGE FORM, QD
     Route: 048
  2. BUPRENORPHINE HYDROCHLORIDE [Concomitant]
     Active Substance: BUPRENORPHINE HYDROCHLORIDE
  3. CLONAZEPAM [Concomitant]
     Active Substance: CLONAZEPAM
  4. DESVENLAFAXINE [Concomitant]
     Active Substance: DESVENLAFAXINE
  5. BUPROPION HYDROCHLORIDE [Concomitant]
     Active Substance: BUPROPION HYDROCHLORIDE
  6. OXYCODONE HYDROCHLORIDE\OXYCODONE TEREPHTHALATE [Concomitant]
     Active Substance: OXYCODONE HYDROCHLORIDE\OXYCODONE TEREPHTHALATE

REACTIONS (4)
  - Vomiting [Recovered/Resolved]
  - Peripheral swelling [Unknown]
  - Paraesthesia [Unknown]
  - Insomnia [Unknown]
